FAERS Safety Report 4428823-3 (Version None)
Quarter: 2004Q3

REPORT INFORMATION
  Report Type: 
  Country: None (occurrence: None)
  Receive Date: 20040818
  Receipt Date: 20040713
  Transmission Date: 20050211
  Serious: Yes (Hospitalization)
  Sender: FDA-Public Use
  Company Number: AU-GLAXOSMITHKLINE-B0339775A

PATIENT
  Age: 58 Year
  Sex: Female
  Weight: 87 kg

DRUGS (1)
  1. ZYBAN [Suspect]
     Dosage: 1TAB PER DAY
     Route: 048

REACTIONS (8)
  - AMNESIA [None]
  - BLOOD PRESSURE DECREASED [None]
  - CARDIAC FLUTTER [None]
  - CHEST PAIN [None]
  - FEELING ABNORMAL [None]
  - HEADACHE [None]
  - HIATUS HERNIA [None]
  - INSOMNIA [None]
